FAERS Safety Report 4621007-5 (Version None)
Quarter: 2005Q1

REPORT INFORMATION
  Report Type: 
  Country: None (occurrence: None)
  Receive Date: 20050325
  Receipt Date: 20050315
  Transmission Date: 20050727
  Serious: Yes (Hospitalization)
  Sender: FDA-Public Use
  Company Number: MK200503-0216-1

PATIENT
  Age: 41 Year
  Sex: Male

DRUGS (6)
  1. ANAFRANIL CAP [Suspect]
  2. EPADEL [Concomitant]
  3. FOIPAN [Concomitant]
  4. GASMOTIN [Concomitant]
  5. TAGAMET [Concomitant]
  6. URSO 250 [Concomitant]

REACTIONS (5)
  - ASTHENIA [None]
  - BLOOD CREATINE PHOSPHOKINASE INCREASED [None]
  - HYPOKALAEMIA [None]
  - PARALYSIS [None]
  - QUADRIPLEGIA [None]
